FAERS Safety Report 8945344 (Version 1)
Quarter: 2012Q4

REPORT INFORMATION
  Report Type: 
  Country: MX (occurrence: MX)
  Receive Date: 20121205
  Receipt Date: 20121205
  Transmission Date: 20130627
  Serious: Yes (Other)
  Sender: FDA-Public Use
  Company Number: PHHY2012MX110119

PATIENT
  Sex: Male

DRUGS (1)
  1. RITALIN LA [Suspect]
     Dates: start: 2008

REACTIONS (1)
  - Platelet count decreased [Unknown]
